FAERS Safety Report 9233699 (Version 1)
Quarter: 2013Q2

REPORT INFORMATION
  Report Type: Spontaneous
  Country: US (occurrence: US)
  Receive Date: 20130416
  Receipt Date: 20130416
  Transmission Date: 20140414
  Serious: No
  Sender: FDA-Public Use
  Company Number: US-BANPHARM-20130887

PATIENT
  Sex: Female

DRUGS (5)
  1. IRON [Concomitant]
  2. VITAMIN C [Concomitant]
  3. VITAMIN D [Concomitant]
  4. MULTIVITAMIN FOR WOMEN [Concomitant]
  5. ALEVE LIQUID GELS 220MG [Suspect]
     Indication: BACK PAIN
     Dosage: 2 DF, BID,
     Route: 048
     Dates: start: 201203

REACTIONS (2)
  - Drug ineffective [Unknown]
  - Incorrect dose administered [Unknown]
